FAERS Safety Report 20956420 (Version 1)
Quarter: 2022Q2

REPORT INFORMATION
  Report Type: Spontaneous
  Country: US (occurrence: None)
  Receive Date: 20220613
  Receipt Date: 20220613
  Transmission Date: 20220721
  Serious: Yes (Hospitalization)
  Sender: FDA-Public Use
  Company Number: None

PATIENT
  Sex: 0

DRUGS (2)
  1. BENLYSTA [Suspect]
     Active Substance: BELIMUMAB
  2. DEPAKOTE [Suspect]
     Active Substance: DIVALPROEX SODIUM

REACTIONS (5)
  - Stevens-Johnson syndrome [None]
  - Dysphonia [None]
  - Dysphonia [None]
  - Vocal cord dysfunction [None]
  - Injection site pain [None]
